FAERS Safety Report 6285123-7 (Version None)
Quarter: 2009Q3

REPORT INFORMATION
  Report Type: 
  Country: None (occurrence: None)
  Receive Date: 20090727
  Receipt Date: 20090717
  Transmission Date: 20100115
  Serious: Yes (Other)
  Sender: FDA-Public Use
  Company Number: CA-PFIZER INC-2009217700

PATIENT
  Age: 75 Year

DRUGS (5)
  1. LIPITOR [Suspect]
     Indication: BLOOD CHOLESTEROL INCREASED
     Dosage: ONCE DAILY
     Dates: start: 20010820, end: 20070704
  2. LIPITOR [Suspect]
     Dosage: UNK
     Dates: start: 20040501, end: 20040501
  3. LIPITOR [Suspect]
     Dosage: UNK
     Dates: start: 20040607, end: 20040707
  4. VASOTEC [Concomitant]
  5. METOPROLOL [Concomitant]
     Indication: BLOOD PRESSURE MANAGEMENT

REACTIONS (3)
  - ARTHRALGIA [None]
  - HEPATIC ENZYME ABNORMAL [None]
  - MUSCLE ATROPHY [None]
